FAERS Safety Report 21341157 (Version 1)
Quarter: 2022Q3

REPORT INFORMATION
  Report Type: Spontaneous
  Country: DK (occurrence: DK)
  Receive Date: 20220916
  Receipt Date: 20220916
  Transmission Date: 20221027
  Serious: Yes (Hospitalization)
  Sender: FDA-Public Use
  Company Number: None

PATIENT
  Age: 29 Year
  Sex: Female

DRUGS (1)
  1. TETRACYCLINE [Suspect]
     Active Substance: TETRACYCLINE
     Indication: Helicobacter infection
     Dosage: DOSAGE: UNKNOWN , STRENGTH: UNKNOWN
     Route: 065
     Dates: start: 20191116, end: 201911

REACTIONS (13)
  - Hyperacusis [Unknown]
  - Disturbance in attention [Unknown]
  - Tinnitus [Unknown]
  - Dizziness [Unknown]
  - Fatigue [Unknown]
  - Nausea [Unknown]
  - Headache [Unknown]
  - Photophobia [Unknown]
  - Idiopathic intracranial hypertension [Recovered/Resolved]
  - Papilloedema [Unknown]
  - Eye pain [Unknown]
  - Vision blurred [Unknown]
  - Visual impairment [Unknown]

NARRATIVE: CASE EVENT DATE: 20190101
